FAERS Safety Report 5823914-4 (Version None)
Quarter: 2008Q3

REPORT INFORMATION
  Report Type: 
  Country: None (occurrence: None)
  Receive Date: 20080724
  Receipt Date: 20080711
  Transmission Date: 20090109
  Serious: Yes (Congenital Anomaly)
  Sender: FDA-Public Use
  Company Number: 8020984

PATIENT
  Sex: Male
  Weight: 13.8 kg

DRUGS (4)
  1. KEPPRA [Suspect]
     Indication: EPILEPSY
     Dosage: 1500 MG, TRP
     Route: 064
     Dates: start: 20051101, end: 20060806
  2. KEPPRA [Suspect]
     Indication: EPILEPSY
     Dosage: 1500 MG, TRM
     Route: 063
     Dates: start: 20060806
  3. FOLIC ACID [Concomitant]
  4. VITAMIN TAB [Concomitant]

REACTIONS (4)
  - CONGENITAL ANOMALY [None]
  - DRUG EXPOSURE VIA BREAST MILK [None]
  - MATERNAL DRUGS AFFECTING FOETUS [None]
  - VENTRICULAR SEPTAL DEFECT [None]
